FAERS Safety Report 23530551 (Version 1)
Quarter: 2024Q1

REPORT INFORMATION
  Report Type: Spontaneous
  Country: US (occurrence: US)
  Receive Date: 20240216
  Receipt Date: 20240216
  Transmission Date: 20240410
  Serious: Yes (Hospitalization, Other)
  Sender: FDA-Public Use
  Company Number: US-BRISTOL-MYERS SQUIBB COMPANY-2024-021546

PATIENT
  Age: 72 Year
  Sex: Male

DRUGS (2)
  1. LENALIDOMIDE [Suspect]
     Active Substance: LENALIDOMIDE
     Indication: Plasma cell myeloma
  2. LENALIDOMIDE [Suspect]
     Active Substance: LENALIDOMIDE
     Route: 048

REACTIONS (7)
  - Clostridium difficile colitis [Recovering/Resolving]
  - Rash [Recovered/Resolved]
  - Tremor [Unknown]
  - Back pain [Unknown]
  - Blood calcium abnormal [Unknown]
  - Thrombosis [Unknown]
  - Sinusitis [Recovered/Resolved]
